FAERS Safety Report 8549199-6 (Version None)
Quarter: 2012Q3

REPORT INFORMATION
  Report Type: 
  Country: None (occurrence: None)
  Receive Date: 20120730
  Receipt Date: 20120719
  Transmission Date: 20120928
  Serious: Yes (Hospitalization)
  Sender: FDA-Public Use
  Company Number: JP-VERTEX PHARMACEUTICALS INC.-AE-2012-010861

PATIENT
  Age: 55 Year
  Sex: Male

DRUGS (7)
  1. URSO 250 [Concomitant]
     Route: 048
  2. TELAVIC (TELAPREVIR) [Suspect]
     Indication: HEPATITIS C
     Route: 048
     Dates: start: 20120530, end: 20120605
  3. PEGINTERFERON ALFA-2B [Concomitant]
     Indication: HEPATITIS C
     Route: 058
     Dates: start: 20120530
  4. MOTILIUM [Concomitant]
     Route: 048
     Dates: start: 20120602, end: 20120606
  5. REBETOL [Concomitant]
     Indication: HEPATITIS C
     Route: 048
     Dates: start: 20120530
  6. FAMOTIDINE [Concomitant]
     Dates: start: 20120602, end: 20120611
  7. ALLEGRA [Concomitant]
     Route: 048
     Dates: start: 20120531, end: 20120601

REACTIONS (2)
  - NAUSEA [None]
  - ABDOMINAL PAIN UPPER [None]
